FAERS Safety Report 14583150 (Version 1)
Quarter: 2018Q1

REPORT INFORMATION
  Report Type: Spontaneous
  Country: DE (occurrence: DE)
  Receive Date: 20180228
  Receipt Date: 20180228
  Transmission Date: 20180509
  Serious: Yes (Death, Hospitalization, Disabling, Other)
  Sender: FDA-Public Use
  Company Number: DE-BAUSCH-BL-2018-004993

PATIENT
  Age: 65 Year
  Sex: Female
  Weight: 114 kg

DRUGS (18)
  1. TORASEMID AL [Concomitant]
     Active Substance: TORSEMIDE
     Indication: PRODUCT USED FOR UNKNOWN INDICATION
     Dosage: DAILY DOSE: 30 MG MILLIGRAM(S) EVERY DAY
  2. CELLIDRIN [Concomitant]
     Indication: PRODUCT USED FOR UNKNOWN INDICATION
     Dosage: DAILY DOSE: 150 MG MILLIGRAM(S) EVERY DAY
  3. PREGABALIN. [Concomitant]
     Active Substance: PREGABALIN
     Indication: PRODUCT USED FOR UNKNOWN INDICATION
     Dosage: DAILY DOSE: 150 MG MILLIGRAM(S) EVERY DAY
  4. LORATADIN [Concomitant]
     Active Substance: LORATADINE
     Indication: PRODUCT USED FOR UNKNOWN INDICATION
     Dosage: DAILY DOSE: 10 MG MILLIGRAM(S) EVERY DAY
  5. BENAZEPRIL [Concomitant]
     Active Substance: BENAZEPRIL HYDROCHLORIDE
     Indication: PRODUCT USED FOR UNKNOWN INDICATION
     Dosage: DAILY DOSE: 20 MG MILLIGRAM(S) EVERY DAY
  6. METFORMIN [Suspect]
     Active Substance: METFORMIN HYDROCHLORIDE
     Indication: DIABETES MELLITUS
     Dosage: DAILY DOSE: 1000 MG MILLIGRAM(S) EVERY DAY
     Route: 048
  7. VENLAFAXINE [Suspect]
     Active Substance: VENLAFAXINE HYDROCHLORIDE
     Indication: DEPRESSION
     Dosage: 1 DF IN MORNING EVERYDAY
     Route: 048
  8. PREDNISOLON [Concomitant]
     Active Substance: PREDNISOLONE
     Indication: PRODUCT USED FOR UNKNOWN INDICATION
     Dosage: DAILY DOSE: 45 MG MILLIGRAM(S) EVERY DAY
  9. AZITHROMYCIN ANHYDROUS. [Concomitant]
     Active Substance: AZITHROMYCIN ANHYDROUS
     Indication: BRONCHIECTASIS
     Dosage: DAILY DOSE: 500 MG MILLIGRAM(S) EVERY DAY
     Route: 048
  10. INDACATEROL [Concomitant]
     Active Substance: INDACATEROL
     Indication: PRODUCT USED FOR UNKNOWN INDICATION
     Dosage: DAILY DOSE: 1 GTT DROP(S) EVERY DAY
  11. ABILIFY [Concomitant]
     Active Substance: ARIPIPRAZOLE
     Indication: PRODUCT USED FOR UNKNOWN INDICATION
     Dosage: DAILY DOSE: 15 MG MILLIGRAM(S) EVERY DAY
  12. EUTHYROX [Concomitant]
     Active Substance: LEVOTHYROXINE SODIUM
     Indication: PRODUCT USED FOR UNKNOWN INDICATION
     Dosage: DAILY DOSE: 125 ?G MICROGRAM(S) EVERY DAY
  13. TEMAZEPAM. [Concomitant]
     Active Substance: TEMAZEPAM
     Indication: PRODUCT USED FOR UNKNOWN INDICATION
     Dosage: DAILY DOSE: 10 MG MILLIGRAM(S) EVERY DAY
  14. ULTIBRO [Concomitant]
     Active Substance: GLYCOPYRRONIUM\INDACATEROL
     Indication: PRODUCT USED FOR UNKNOWN INDICATION
  15. PANTOPRAZOL [Concomitant]
     Active Substance: PANTOPRAZOLE SODIUM
     Indication: PRODUCT USED FOR UNKNOWN INDICATION
     Dosage: DAILY DOSE: 20 MG MILLIGRAM(S) EVERY DAY
     Route: 048
  16. VERAPAMIL HENNING [Concomitant]
     Indication: PRODUCT USED FOR UNKNOWN INDICATION
     Dosage: DAILY DOSE: 120 MG MILLIGRAM(S) EVERY DAY
  17. RAMIPRIL. [Concomitant]
     Active Substance: RAMIPRIL
     Indication: PRODUCT USED FOR UNKNOWN INDICATION
     Dosage: DAILY DOSE: 5 MG MILLIGRAM(S) EVERY DAY
  18. LYRICA [Concomitant]
     Active Substance: PREGABALIN
     Indication: PRODUCT USED FOR UNKNOWN INDICATION
     Dosage: DAILY DOSE: 300 MG MILLIGRAM(S) EVERY DAY

REACTIONS (3)
  - Respiratory failure [Fatal]
  - Interstitial lung disease [Fatal]
  - Condition aggravated [Fatal]

NARRATIVE: CASE EVENT DATE: 20160101
